FAERS Safety Report 6210348-6 (Version None)
Quarter: 2009Q2

REPORT INFORMATION
  Report Type: 
  Country: None (occurrence: None)
  Receive Date: 20090529
  Receipt Date: 20090529
  Transmission Date: 20091009
  Serious: Yes (Other)
  Sender: FDA-Public Use
  Company Number: None

PATIENT
  Age: 5 Year
  Sex: Female
  Weight: 21.3191 kg

DRUGS (1)
  1. SINGULAIR [Suspect]
     Indication: ASTHMA
     Dosage: 1 TIME OTHER
     Route: 050

REACTIONS (4)
  - DYSKINESIA [None]
  - NIGHTMARE [None]
  - PERSONALITY CHANGE [None]
  - SLEEP TERROR [None]
